FAERS Safety Report 25922949 (Version 1)
Quarter: 2025Q4

REPORT INFORMATION
  Report Type: Spontaneous
  Country: EU (occurrence: EU)
  Receive Date: 20251015
  Receipt Date: 20251015
  Transmission Date: 20260118
  Serious: Yes (Other)
  Sender: ALEXION PHARMACEUTICALS
  Company Number: None

PATIENT
  Sex: Female

DRUGS (1)
  1. KOSELUGO [Suspect]
     Active Substance: SELUMETINIB
     Indication: Neurofibromatosis
     Dosage: 50 MILLIGRAM, BID
     Dates: start: 202407, end: 202508

REACTIONS (5)
  - Erysipelas [Recovered/Resolved]
  - Erythema [Recovered/Resolved]
  - Transaminases increased [Recovered/Resolved]
  - Oedema peripheral [Recovered/Resolved]
  - Off label use [Recovered/Resolved]

NARRATIVE: CASE EVENT DATE: 20240701
